FAERS Safety Report 8231088-8 (Version None)
Quarter: 2012Q1

REPORT INFORMATION
  Report Type: 
  Country: None (occurrence: None)
  Receive Date: 20120322
  Receipt Date: 20120322
  Transmission Date: 20120608
  Serious: Yes (Life-Threatening)
  Sender: FDA-Public Use
  Company Number: None

PATIENT
  Age: 72 Year
  Sex: Male
  Weight: 98.4 kg

DRUGS (2)
  1. COLCHICINE [Concomitant]
     Indication: GOUT
     Dosage: 0.6MG
     Route: 048
     Dates: start: 20100701, end: 20110922
  2. SIMVASTATIN [Suspect]
     Indication: HYPERLIPIDAEMIA
     Dosage: 80MG
     Route: 048
     Dates: start: 20100301, end: 20110922

REACTIONS (12)
  - MYOPATHY [None]
  - RHABDOMYOLYSIS [None]
  - RENAL FAILURE ACUTE [None]
  - DRUG INTERACTION [None]
  - GUILLAIN-BARRE SYNDROME [None]
  - GOUT [None]
  - BLOOD PRESSURE ABNORMAL [None]
  - GASTROINTESTINAL HAEMORRHAGE [None]
  - HYPERKALAEMIA [None]
  - DIALYSIS [None]
  - DIARRHOEA [None]
  - ESCHERICHIA TEST POSITIVE [None]
